FAERS Safety Report 20643216 (Version 2)
Quarter: 2022Q2

REPORT INFORMATION
  Report Type: Report from Study
  Country: AT (occurrence: AT)
  Receive Date: 20220328
  Receipt Date: 20220426
  Transmission Date: 20220721
  Serious: Yes (Hospitalization)
  Sender: FDA-Public Use
  Company Number: AT-ROCHE-3018798

PATIENT
  Age: 41 Year
  Sex: Female

DRUGS (59)
  1. DOCETAXEL [Suspect]
     Active Substance: DOCETAXEL
     Indication: HER2 positive breast cancer
     Dosage: 75 MILLIGRAM/SQ. METER, Q3W (Q3W - EVERY 3 WEEKSMOST RECENT DATE OF DRUG ADMINISTRATION PRIOR TO AE:
     Route: 042
     Dates: start: 20161020, end: 20161020
  2. DOCETAXEL [Suspect]
     Active Substance: DOCETAXEL
     Dosage: 75 MILLIGRAM/SQ. METER, Q3W (Q3W - EVERY 3 WEEKSMOST RECENT DATE OF DRUG ADMINISTRATION PRIOR TO AE:
     Route: 042
     Dates: start: 20161111, end: 20161111
  3. DOCETAXEL [Suspect]
     Active Substance: DOCETAXEL
     Dosage: 100 MILLIGRAM/SQ. METER, Q3W (MOST RECENT DATE OF DRUG ADMINISTRATION PRIOR TO AE: 2/FEB/2017)
     Route: 042
     Dates: start: 20170112
  4. DOCETAXEL [Suspect]
     Active Substance: DOCETAXEL
     Dosage: 100 MILLIGRAM/SQ. METER, Q3W (MOST RECENT DATE OF DRUG ADMINISTRATION PRIOR TO AE: 2/FEB/2017)
     Route: 042
     Dates: start: 20161201, end: 20161222
  5. EPIRUBICIN [Suspect]
     Active Substance: EPIRUBICIN
     Indication: HER2 positive breast cancer
     Dosage: 100 MILLIGRAM/SQ. METER (MOST RECENT DATE OF DRUG ADMINISTRATION PRIOR TO AE: 05/OCT/2016)
     Route: 042
     Dates: start: 20161005
  6. TUCATINIB [Suspect]
     Active Substance: TUCATINIB
     Indication: HER2 positive breast cancer
     Dosage: 300 MILLIGRAM, BID (B.I.D. - TWICE DAILY)
     Route: 048
     Dates: start: 20210430
  7. CYCLOPHOSPHAMIDE [Suspect]
     Active Substance: CYCLOPHOSPHAMIDE
     Indication: HER2 positive breast cancer
     Dosage: 500 MILLIGRAM/SQ. METER (OTHER)
     Route: 042
     Dates: start: 20161005, end: 20161005
  8. ADO-TRASTUZUMAB EMTANSINE [Suspect]
     Active Substance: ADO-TRASTUZUMAB EMTANSINE
     Indication: HER2 positive breast cancer
     Dosage: 3.6 MILLIGRAM/KILOGRAM, Q3W (Q3W - EVERY 3 WEEKSMOST RECENT DATE OF DRUG ADMINISTRATION PRIOR TO AE:
     Route: 042
     Dates: start: 20180205
  9. TRASTUZUMAB [Suspect]
     Active Substance: TRASTUZUMAB
     Indication: HER2 positive breast cancer
     Dosage: 8 MILLIGRAM/KILOGRAM, Q3W (Q3W - EVERY 3 WEEKSMOST RECENT DATE OF DRUG ADMINISTRATION PRIOR TO AE: 0
     Route: 041
     Dates: start: 20161020, end: 20161020
  10. TRASTUZUMAB [Suspect]
     Active Substance: TRASTUZUMAB
     Dosage: 8 MILLIGRAM/KILOGRAM, Q3W (Q3W - EVERY 3 WEEKSMOST RECENT DATE OF DRUG ADMINISTRATION PRIOR TO AE: 0
     Route: 041
     Dates: start: 20170112, end: 20170112
  11. TRASTUZUMAB [Suspect]
     Active Substance: TRASTUZUMAB
     Dosage: 6 MILLIGRAM/KILOGRAM, Q3W, MOST RECENT DATE OF DRUG ADMINISTRATION PRIOR TO AE: 08 JAN 2018
     Route: 041
     Dates: start: 20170227
  12. TRASTUZUMAB [Suspect]
     Active Substance: TRASTUZUMAB
     Dosage: 6 MILLIGRAM/KILOGRAM, Q3W
     Route: 041
     Dates: start: 20190906
  13. PERTUZUMAB [Suspect]
     Active Substance: PERTUZUMAB
     Indication: HER2 positive breast cancer
     Dosage: 840 MILLIGRAM, Q3W (Q3W - EVERY 3 WEEKSMOST RECENT DATE OF DRUG ADMINISTRATION PRIOR TO AE: 06/SEP/2
     Route: 042
     Dates: start: 20161020
  14. PERTUZUMAB [Suspect]
     Active Substance: PERTUZUMAB
     Dosage: 840 MILLIGRAM, Q3W
     Route: 042
     Dates: start: 20170112, end: 20170112
  15. PERTUZUMAB [Suspect]
     Active Substance: PERTUZUMAB
     Dosage: 420 MILLIGRAM, Q3W
     Route: 042
     Dates: start: 20190906, end: 20210409
  16. PERTUZUMAB [Suspect]
     Active Substance: PERTUZUMAB
     Dosage: 420 MILLIGRAM, Q3W, MOST RECENT DATE OF DRUG ADMINISTRATION PRIOR TO AE: 8/JAN/2018
     Route: 042
     Dates: start: 20170227
  17. CAPECITABINE [Suspect]
     Active Substance: CAPECITABINE
     Indication: HER2 positive breast cancer
     Dosage: 1000 MILLIGRAM, DAY 1 - DAY 14, TWICE DAILY
     Route: 048
     Dates: start: 20210904
  18. CAPECITABINE [Suspect]
     Active Substance: CAPECITABINE
     Dosage: 1500 MILLIGRAM, DAY 1 - DAY 14, TWICE DAILY
     Route: 048
     Dates: start: 20210430, end: 20210903
  19. IMODIUM [Concomitant]
     Active Substance: LOPERAMIDE HYDROCHLORIDE
     Indication: Diarrhoea
     Dosage: UNK
     Route: 048
  20. XGEVA [Concomitant]
     Active Substance: DENOSUMAB
     Dosage: 1200 MILLIGRAM
     Route: 042
     Dates: start: 20161201
  21. DEXIBUPROFEN [Concomitant]
     Active Substance: DEXIBUPROFEN
     Dosage: ONGOING = CHECKED
     Dates: start: 20210312
  22. ENTEROBENE [Concomitant]
     Indication: Diarrhoea
     Dosage: ONGOING = CHECKED
     Dates: start: 20171127
  23. SUCRALAN [Concomitant]
     Dosage: ONGOING = NOT CHECKED
  24. BISOPROLOL FUMARATE [Concomitant]
     Active Substance: BISOPROLOL FUMARATE
     Indication: Prophylaxis
     Dosage: 2.5 MILLIGRAM, ONGOING = CHECKED
     Route: 048
     Dates: start: 20170227
  25. BISOPROLOL FUMARATE [Concomitant]
     Active Substance: BISOPROLOL FUMARATE
     Dosage: 1.25 MILLIGRAM, QD
     Route: 048
     Dates: start: 20161117, end: 20170226
  26. VITAMINS WITH MINERALS [Concomitant]
     Active Substance: MINERALS\VITAMINS
     Indication: Osteoporosis
     Dosage: 1 DOSAGE FORM, (ONGOING = CHECKED)
     Dates: start: 20161112
  27. SERTRALINE [Concomitant]
     Active Substance: SERTRALINE HYDROCHLORIDE
     Dosage: ONGOING = CHECKED
     Dates: start: 20171016
  28. HYDROMORPHONE HYDROCHLORIDE [Concomitant]
     Active Substance: HYDROMORPHONE HYDROCHLORIDE
     Indication: Pain
     Dosage: ONGOING = CHECKED
     Dates: start: 20210410
  29. HYDROMORPHONE HYDROCHLORIDE [Concomitant]
     Active Substance: HYDROMORPHONE HYDROCHLORIDE
     Dosage: UNK
     Route: 048
     Dates: start: 20210326, end: 20210409
  30. HYDROMORPHONE HYDROCHLORIDE [Concomitant]
     Active Substance: HYDROMORPHONE HYDROCHLORIDE
     Dosage: UNK
     Route: 048
     Dates: start: 20190816, end: 20210326
  31. HYDROMORPHONE HYDROCHLORIDE [Concomitant]
     Active Substance: HYDROMORPHONE HYDROCHLORIDE
     Dosage: 1.3 MILLIGRAM
     Route: 048
     Dates: start: 201706
  32. ONDANSETRON HYDROCHLORIDE [Concomitant]
     Active Substance: ONDANSETRON HYDROCHLORIDE
     Indication: Nausea
     Dosage: ONGOING = CHECKED
     Dates: start: 20181105
  33. RAMIPRIL [Concomitant]
     Active Substance: RAMIPRIL
     Indication: Cardiovascular event prophylaxis
     Dosage: ONGOING = CHECKED
     Dates: start: 20170227
  34. RAMIPRIL [Concomitant]
     Active Substance: RAMIPRIL
     Dosage: 2.5 MILLIGRAM
     Route: 048
     Dates: start: 20161112, end: 20161221
  35. DEXAMETHASONE [Concomitant]
     Active Substance: DEXAMETHASONE
     Indication: Prophylaxis
     Dosage: UNK
     Route: 048
     Dates: start: 20161202, end: 20161203
  36. TAZOBACTAM [Concomitant]
     Active Substance: TAZOBACTAM
     Indication: Febrile neutropenia
     Dosage: 4.5 MILLIGRAM, QD
     Route: 042
     Dates: start: 20161208, end: 20161212
  37. HALDOL [Concomitant]
     Active Substance: HALOPERIDOL
     Indication: Nausea
     Dosage: 4 [DRP] (DROP (1/12 MILLILITRE))
     Route: 048
     Dates: start: 201702
  38. POLYETHYLENE GLYCOL 3350\POTASSIUM CHLORIDE\SODIUM BICARBONATE\SODIUM [Concomitant]
     Active Substance: POLYETHYLENE GLYCOL 3350\POTASSIUM CHLORIDE\SODIUM BICARBONATE\SODIUM CHLORIDE
     Dosage: UNK
     Route: 048
  39. FENTANYL [Concomitant]
     Active Substance: FENTANYL
     Indication: Pain
     Dosage: 25 MICROGRAM
     Route: 062
     Dates: start: 201706
  40. LASIX [Concomitant]
     Active Substance: FUROSEMIDE
     Indication: Oedema
     Dosage: 40 MILLIGRAM, QD
     Route: 042
     Dates: start: 20161112, end: 201611
  41. LASIX [Concomitant]
     Active Substance: FUROSEMIDE
     Indication: Oedema
     Dosage: 30 MILLIGRAM, QD
     Route: 048
     Dates: start: 20161114
  42. ALPRAZOLAM [Concomitant]
     Active Substance: ALPRAZOLAM
     Dosage: 0.5 MILLIGRAM
     Route: 048
     Dates: start: 20161117
  43. XARELTO [Concomitant]
     Active Substance: RIVAROXABAN
     Indication: Thrombosis
     Dosage: 10 MILLIGRAM
     Route: 048
     Dates: start: 20161026, end: 201612
  44. FILGRASTIM [Concomitant]
     Active Substance: FILGRASTIM
     Indication: Febrile neutropenia
     Dosage: 48 INTERNATIONAL UNIT
     Route: 042
     Dates: start: 20161208, end: 20161211
  45. METOCLOPRAMIDE [Concomitant]
     Active Substance: METOCLOPRAMIDE
     Dosage: UNK
     Route: 042
     Dates: start: 20180205, end: 20190816
  46. Paspertin [Concomitant]
     Indication: Nausea
     Dosage: UNK, (3 AMPULE )
     Route: 042
     Dates: start: 20161113
  47. LIPEGFILGRASTIM [Concomitant]
     Active Substance: LIPEGFILGRASTIM
     Indication: Neutropenia
     Dosage: UNK
     Route: 058
     Dates: start: 20170113, end: 20170203
  48. SERTRALINE HYDROCHLORIDE [Concomitant]
     Active Substance: SERTRALINE HYDROCHLORIDE
     Dosage: 50 MILLIGRAM
     Route: 048
     Dates: start: 201710
  49. OPTIFIBRE [Concomitant]
     Dosage: UNK
     Route: 048
     Dates: start: 201706
  50. GLANDOMED [Concomitant]
     Indication: Pharyngitis
     Dosage: UNK, PRN (AS NEEDED)
     Route: 061
     Dates: start: 20161208, end: 20161222
  51. PERFALGAN [Concomitant]
     Active Substance: ACETAMINOPHEN
     Indication: Febrile neutropenia
     Dosage: 1 GRAM, QD
     Route: 042
     Dates: start: 20161208, end: 20161212
  52. HALCION [Concomitant]
     Active Substance: TRIAZOLAM
     Indication: Sleep disorder
     Dosage: 0.25 MILLIGRAM
     Route: 048
     Dates: start: 2016, end: 201702
  53. ZOFRAN [Concomitant]
     Active Substance: ONDANSETRON HYDROCHLORIDE
     Indication: Nausea
     Dosage: UNK
     Route: 048
     Dates: start: 20161123, end: 20170204
  54. AMOXICILLIN\CLAVULANATE POTASSIUM [Concomitant]
     Active Substance: AMOXICILLIN\CLAVULANATE POTASSIUM
     Indication: Febrile neutropenia
     Dosage: 1 GRAM
     Route: 048
     Dates: start: 20161212, end: 20161216
  55. CEOLAT [Concomitant]
     Indication: Nausea
     Dosage: 2.5 MILLIGRAM
     Route: 048
     Dates: start: 20161112, end: 20161221
  56. KCL [Concomitant]
     Active Substance: POTASSIUM CHLORIDE
     Indication: Hypokalaemia
     Dosage: 1200 MILLIGRAM, BID
     Route: 048
     Dates: start: 20161117, end: 201702
  57. DEXAMETHASONE [Concomitant]
     Active Substance: DEXAMETHASONE
     Dosage: 8 MILLIGRAM
     Route: 048
     Dates: start: 20180817, end: 20180831
  58. ARANESP [Concomitant]
     Active Substance: DARBEPOETIN ALFA
     Indication: Anaemia
     Dosage: UNK
     Dates: start: 20161201, end: 201701
  59. PANTOPRAZOLE SODIUM [Concomitant]
     Active Substance: PANTOPRAZOLE SODIUM
     Dosage: 40 MILLIGRAM, QD
     Route: 048
     Dates: start: 20161031, end: 20161123

REACTIONS (1)
  - Epilepsy [Unknown]

NARRATIVE: CASE EVENT DATE: 20220131
